FAERS Safety Report 20210553 (Version 1)
Quarter: 2021Q4

REPORT INFORMATION
  Report Type: Spontaneous
  Country: US (occurrence: US)
  Receive Date: 20211221
  Receipt Date: 20211221
  Transmission Date: 20220304
  Serious: No
  Sender: FDA-Public Use
  Company Number: US-GLENMARK PHARMACEUTICALS-2021GMK067883

PATIENT

DRUGS (3)
  1. CICLOPIROX OLAMINE [Suspect]
     Active Substance: CICLOPIROX OLAMINE
     Indication: Skin injury
     Dosage: UNK, BID
     Route: 061
     Dates: start: 20210826
  2. CICLOPIROX OLAMINE [Suspect]
     Active Substance: CICLOPIROX OLAMINE
     Indication: Dry skin
  3. CICLOPIROX [Concomitant]
     Active Substance: CICLOPIROX
     Indication: Skin disorder
     Dosage: UNK
     Route: 065
     Dates: start: 20210826

REACTIONS (5)
  - Erythema [Unknown]
  - Scab [Unknown]
  - Skin irritation [Unknown]
  - Product use in unapproved indication [Unknown]
  - Product dose omission issue [Unknown]
